FAERS Safety Report 7710894-X (Version None)
Quarter: 2011Q3

REPORT INFORMATION
  Report Type: 
  Country: None (occurrence: None)
  Receive Date: 20110825
  Receipt Date: 20110815
  Transmission Date: 20111222
  Serious: Yes (Death)
  Sender: FDA-Public Use
  Company Number: US-GENENTECH-323322

PATIENT

DRUGS (10)
  1. VINCRISTINE [Suspect]
     Indication: BURKITT'S LYMPHOMA
     Dosage: 2 MG, UNK
     Route: 065
  2. METHOTREXATE [Suspect]
     Indication: BURKITT'S LYMPHOMA
     Dosage: 3000 MG/M2, UNK
     Route: 042
  3. CYTARABINE [Suspect]
     Dosage: 50 MG, UNK
     Route: 039
  4. CYCLOPHOSPHAMIDE [Suspect]
     Indication: BURKITT'S LYMPHOMA
     Dosage: 800 MG/M2, UNK
     Route: 065
  5. METHOTREXATE [Suspect]
     Dosage: UNK
     Route: 037
  6. IFOSFAMIDE [Suspect]
     Indication: BURKITT'S LYMPHOMA
     Dosage: UNK
     Route: 065
  7. ETOPOSIDE [Suspect]
     Indication: BURKITT'S LYMPHOMA
     Dosage: UNK
     Route: 065
  8. RITUXIMAB [Suspect]
     Indication: BURKITT'S LYMPHOMA
     Dosage: 375 MG/M2, UNK
     Route: 065
  9. DOXORUBICIN HCL [Suspect]
     Indication: BURKITT'S LYMPHOMA
     Dosage: 50 MG/M2, UNK
     Route: 065
  10. CYTARABINE [Suspect]
     Indication: BURKITT'S LYMPHOMA
     Dosage: UNK
     Route: 065

REACTIONS (8)
  - MYELODYSPLASTIC SYNDROME [None]
  - RENAL FAILURE [None]
  - INFECTION [None]
  - THROMBOCYTOPENIA [None]
  - TUMOUR LYSIS SYNDROME [None]
  - SEPSIS [None]
  - FEBRILE NEUTROPENIA [None]
  - NEUTROPENIA [None]
